FAERS Safety Report 8027046-9 (Version None)
Quarter: 2011Q4

REPORT INFORMATION
  Report Type: 
  Country: None (occurrence: None)
  Receive Date: 20111130
  Receipt Date: 20110622
  Transmission Date: 20120403
  Serious: Yes (Hospitalization, Other)
  Sender: FDA-Public Use
  Company Number: US201008005639

PATIENT
  Age: 57 Year
  Sex: Female
  Weight: 117.9 kg

DRUGS (6)
  1. METFORMIN HCL [Concomitant]
  2. FUROSEMIDE [Concomitant]
  3. METOPROLOL TARTRATE [Concomitant]
  4. GLIPIZIDE [Concomitant]
  5. BYETTA [Suspect]
     Dosage: 5 UG, BID
     Dates: start: 20080319
  6. BYETTA [Suspect]
     Dosage: 5 UG, BID
     Dates: end: 20090622

REACTIONS (2)
  - WEIGHT DECREASED [None]
  - PANCREATITIS ACUTE [None]
